FAERS Safety Report 12091840 (Version 1)
Quarter: 2016Q1

REPORT INFORMATION
  Report Type: Spontaneous
  Country: IL (occurrence: IL)
  Receive Date: 20160218
  Receipt Date: 20160218
  Transmission Date: 20160526
  Serious: Yes (Hospitalization, Other)
  Sender: FDA-Public Use
  Company Number: IL-AMGEN-ISRSP2016018758

PATIENT
  Age: 39 Year
  Sex: Male

DRUGS (1)
  1. ENBREL [Suspect]
     Active Substance: ETANERCEPT
     Indication: PRODUCT USED FOR UNKNOWN INDICATION
     Dosage: 50 MG, WEEKLY
     Route: 065

REACTIONS (8)
  - C-reactive protein increased [Unknown]
  - Disease progression [Unknown]
  - Anal fistula [Unknown]
  - Normochromic normocytic anaemia [Unknown]
  - Oedema mucosal [Unknown]
  - Red blood cell sedimentation rate increased [Unknown]
  - Ileal ulcer [Unknown]
  - Iridocyclitis [Unknown]

NARRATIVE: CASE EVENT DATE: 201510
